FAERS Safety Report 16046972 (Version 2)
Quarter: 2019Q1

REPORT INFORMATION
  Report Type: Spontaneous
  Country: US (occurrence: US)
  Receive Date: 20190307
  Receipt Date: 20190312
  Transmission Date: 20190418
  Serious: No
  Sender: FDA-Public Use
  Company Number: US-PFIZER INC-2019082518

PATIENT
  Age: 63 Year
  Sex: Female
  Weight: 87.9 kg

DRUGS (3)
  1. IBUPROFEN. [Suspect]
     Active Substance: IBUPROFEN
     Indication: POST HERPETIC NEURALGIA
     Dosage: 800MG IBUPROFEN THREE TIMES A DAY (6 IN THE MORNING, 2 IN THE AFTERNOON, AND 2 AT NIGHT)
     Dates: start: 20190117
  2. IBUPROFEN. [Suspect]
     Active Substance: IBUPROFEN
     Dosage: 800 MG 3 TIMES A DAY
     Dates: start: 20190125
  3. GABAPENTIN. [Suspect]
     Active Substance: GABAPENTIN
     Indication: POST HERPETIC NEURALGIA
     Dosage: 300 MG, 3X/DAY
     Dates: start: 20190117, end: 20190125

REACTIONS (1)
  - Drug ineffective [Unknown]
